FAERS Safety Report 10682738 (Version 1)
Quarter: 2014Q4

REPORT INFORMATION
  Report Type: Spontaneous
  Country: US (occurrence: None)
  Receive Date: 20141217
  Receipt Date: 20141217
  Transmission Date: 20150529
  Serious: Yes (Hospitalization)
  Sender: FDA-Public Use
  Company Number: TPA2010A05794

PATIENT
  Age: 84 Year
  Sex: Female
  Weight: 43.09 kg

DRUGS (5)
  1. DEXILANT [Suspect]
     Active Substance: DEXLANSOPRAZOLE
     Indication: GASTROOESOPHAGEAL REFLUX DISEASE
     Dosage: 60 MG, 1 IN 1 D, PER ORAL
     Route: 048
     Dates: start: 20101010, end: 20101015
  2. ARMOUR THYROID (THYROID) [Concomitant]
  3. LOMOTIL (ATROPINE SULFATE, DIPHENOXYLATE HYDROCHLORIDE) [Concomitant]
  4. KLOR-CON [Concomitant]
     Active Substance: POTASSIUM CHLORIDE
  5. METOPROLOL (METOPROLOL) [Concomitant]
     Active Substance: METOPROLOL

REACTIONS (4)
  - Feeling abnormal [None]
  - Blood potassium decreased [None]
  - Diarrhoea [None]
  - Asthenia [None]

NARRATIVE: CASE EVENT DATE: 201010
